FAERS Safety Report 15740482 (Version 2)
Quarter: 2019Q1

REPORT INFORMATION
  Report Type: Spontaneous
  Country: JP (occurrence: JP)
  Receive Date: 20181219
  Receipt Date: 20190129
  Transmission Date: 20190417
  Serious: Yes (Other)
  Sender: FDA-Public Use
  Company Number: JP-PFIZER INC-2018515201

PATIENT
  Age: 79 Year
  Sex: Male
  Weight: 70 kg

DRUGS (8)
  1. LIMAPROST [Suspect]
     Active Substance: LIMAPROST
     Dosage: UNK
     Route: 048
  2. NIFEDIPINE. [Concomitant]
     Active Substance: NIFEDIPINE
     Dosage: UNK
     Route: 048
  3. ISOSORBIDE MONONITRATE. [Concomitant]
     Active Substance: ISOSORBIDE MONONITRATE
     Dosage: UNK
     Route: 048
  4. LYRICA [Suspect]
     Active Substance: PREGABALIN
     Dosage: UNK
     Route: 048
  5. TRAMAL [Suspect]
     Active Substance: TRAMADOL
     Indication: HYPOAESTHESIA
     Dosage: 100 MG, DAILY (3 DIVIDED DOSES, DAILY (25 MG, 50 MG, 25 MG)
     Route: 048
  6. LIXIANA [Suspect]
     Active Substance: EDOXABAN TOSYLATE
     Dosage: UNK
     Route: 048
  7. MAGNESIUM OXIDE. [Suspect]
     Active Substance: MAGNESIUM OXIDE
     Dosage: UNK
     Route: 048
  8. TRAMAL [Suspect]
     Active Substance: TRAMADOL
     Indication: PAIN
     Dosage: 50 MG, DAILY
     Route: 048

REACTIONS (2)
  - Faeces discoloured [Recovering/Resolving]
  - Haemorrhage [Unknown]
